FAERS Safety Report 6846189-6 (Version None)
Quarter: 2010Q3

REPORT INFORMATION
  Report Type: 
  Country: None (occurrence: None)
  Receive Date: 20100715
  Receipt Date: 20070914
  Transmission Date: 20110219
  Serious: No
  Sender: FDA-Public Use
  Company Number: US-PFIZER INC-2007076798

PATIENT
  Sex: Female
  Weight: 70.5 kg

DRUGS (3)
  1. CHANTIX [Suspect]
     Indication: SMOKING CESSATION THERAPY
     Dates: start: 20070912
  2. DARVOCET [Concomitant]
     Indication: HEADACHE
  3. PREVACID [Concomitant]
     Indication: DYSPEPSIA

REACTIONS (2)
  - DYSGEUSIA [None]
  - NAUSEA [None]
